FAERS Safety Report 8262145-8 (Version None)
Quarter: 2012Q2

REPORT INFORMATION
  Report Type: 
  Country: None (occurrence: None)
  Receive Date: 20120405
  Receipt Date: 20120328
  Transmission Date: 20120825
  Serious: Yes (Other)
  Sender: FDA-Public Use
  Company Number: JP-SANOFI-AVENTIS-2011SA041860

PATIENT
  Age: 77 Year
  Sex: Female
  Weight: 42 kg

DRUGS (22)
  1. CARVEDILOL [Concomitant]
     Route: 048
     Dates: start: 20090606, end: 20090611
  2. SIGMART [Concomitant]
     Route: 048
     Dates: start: 20090606
  3. WARFARIN SODIUM [Concomitant]
     Route: 048
     Dates: start: 20090721, end: 20091123
  4. ATENOLOL AND CHLORTHALIDONE [Suspect]
     Route: 048
     Dates: start: 20090606
  5. HEPARIN [Concomitant]
     Dates: start: 20090618, end: 20090618
  6. LANSOPRAZOLE [Concomitant]
     Indication: PROPHYLAXIS AGAINST GASTROINTESTINAL ULCER
     Route: 048
     Dates: start: 20090605
  7. CEFAZOLIN [Concomitant]
     Indication: INFECTION PROPHYLAXIS
     Dates: start: 20090618, end: 20090618
  8. CALCIUM POLYSTYRENE SULFONATE [Concomitant]
     Route: 048
     Dates: start: 20091124, end: 20100104
  9. ATENOLOL AND CHLORTHALIDONE [Suspect]
     Route: 048
     Dates: start: 20090605, end: 20090605
  10. HEPARIN [Concomitant]
     Route: 042
     Dates: start: 20090605, end: 20090605
  11. SIGMART [Concomitant]
     Dosage: 2 MG/HR, MAINTAINENCE DOSE
     Route: 041
     Dates: start: 20090605, end: 20090606
  12. HEPARIN [Concomitant]
     Dosage: 300-500 IU/HR, CONTINUOUSLY
     Route: 041
     Dates: start: 20090605, end: 20090606
  13. CARVEDILOL [Concomitant]
     Route: 048
     Dates: start: 20090612
  14. WARFARIN SODIUM [Concomitant]
     Route: 048
     Dates: start: 20091124
  15. NICORANDIL [Concomitant]
     Dosage: 2 MG/HR, MAINTAINENECE DOSE
     Dates: start: 20090618, end: 20090619
  16. ASPIRIN [Concomitant]
     Route: 048
     Dates: start: 20090605
  17. CRESTOR [Concomitant]
     Indication: HYPERLIPIDAEMIA
     Route: 048
     Dates: start: 20090606
  18. ALDACTONE [Concomitant]
     Route: 048
     Dates: start: 20090614, end: 20090618
  19. LOSARTAN POTASSIUM [Concomitant]
     Route: 048
     Dates: start: 20090605
  20. LASIX [Concomitant]
     Route: 048
     Dates: start: 20090614, end: 20090618
  21. WARFARIN SODIUM [Concomitant]
     Route: 048
     Dates: start: 20090625, end: 20090702
  22. WARFARIN SODIUM [Concomitant]
     Route: 048
     Dates: start: 20090703, end: 20090720

REACTIONS (1)
  - ANAEMIA [None]
